FAERS Safety Report 6493921-X (Version None)
Quarter: 2009Q4

REPORT INFORMATION
  Report Type: 
  Country: None (occurrence: None)
  Receive Date: 20091214
  Receipt Date: 20081124
  Transmission Date: 20100525
  Serious: No
  Sender: FDA-Public Use
  Company Number: US-BRISTOL-MYERS SQUIBB COMPANY-14418289

PATIENT
  Sex: Female

DRUGS (2)
  1. ABILIFY [Suspect]
     Dates: start: 20080101
  2. SYNTHROID [Concomitant]

REACTIONS (2)
  - BURNING SENSATION [None]
  - SWELLING [None]
